FAERS Safety Report 20960474 (Version 1)
Quarter: 2022Q2

REPORT INFORMATION
  Report Type: Report from Study
  Country: US (occurrence: US)
  Receive Date: 20220615
  Receipt Date: 20220615
  Transmission Date: 20220721
  Serious: Yes (Hospitalization)
  Sender: FDA-Public Use
  Company Number: US-ARGENX-2022-ARGX-US000524

PATIENT

DRUGS (2)
  1. VYVGART [Suspect]
     Active Substance: EFGARTIGIMOD ALFA-FCAB
     Indication: Myasthenia gravis
     Dosage: UNK
     Dates: start: 20220330, end: 20220420
  2. MESTINON [Concomitant]
     Active Substance: PYRIDOSTIGMINE BROMIDE
     Indication: Product used for unknown indication
     Dosage: UNK
     Route: 048
     Dates: start: 20220330

REACTIONS (5)
  - Hospitalisation [Recovered/Resolved]
  - Dyspnoea [Recovering/Resolving]
  - Dysphagia [Unknown]
  - Therapeutic response shortened [Unknown]
  - Asthenia [Unknown]

NARRATIVE: CASE EVENT DATE: 20220331
